FAERS Safety Report 4431053-2 (Version None)
Quarter: 2004Q3

REPORT INFORMATION
  Report Type: 
  Country: None (occurrence: None)
  Receive Date: 20040817
  Receipt Date: 20040809
  Transmission Date: 20050211
  Serious: Yes (Death)
  Sender: FDA-Public Use
  Company Number: 2004GB01912

PATIENT
  Age: 87 Year
  Sex: Female

DRUGS (5)
  1. QUETIAPINE [Suspect]
     Indication: DELUSION
     Dosage: 325 MG PO
     Route: 048
     Dates: start: 20030410
  2. TRANYLCYPROMINE [Concomitant]
  3. ASPIRIN [Concomitant]
  4. SENNA [Concomitant]
  5. VISCOTEARS [Concomitant]

REACTIONS (3)
  - MULTI-ORGAN FAILURE [None]
  - MYOCARDIAL ISCHAEMIA [None]
  - NEUROLEPTIC MALIGNANT SYNDROME [None]
